FAERS Safety Report 6713272-5 (Version None)
Quarter: 2010Q2

REPORT INFORMATION
  Report Type: 
  Country: None (occurrence: None)
  Receive Date: 20100505
  Receipt Date: 20100505
  Transmission Date: 20101027
  Serious: Yes (Hospitalization)
  Sender: FDA-Public Use
  Company Number: None

PATIENT
  Sex: Female
  Weight: 79.2 kg

DRUGS (1)
  1. CYTARABINE [Suspect]
     Dosage: 34020 MG
     Dates: end: 20090502

REACTIONS (6)
  - ANORECTAL CELLULITIS [None]
  - CHEST PAIN [None]
  - NEUTROPENIA [None]
  - PRURITUS [None]
  - RASH ERYTHEMATOUS [None]
  - STAPHYLOCOCCAL INFECTION [None]
